FAERS Safety Report 14558100 (Version 4)
Quarter: 2019Q1

REPORT INFORMATION
  Report Type: Report from Study
  Country: PL (occurrence: PL)
  Receive Date: 20180221
  Receipt Date: 20190306
  Transmission Date: 20190417
  Serious: Yes (Hospitalization, Other)
  Sender: FDA-Public Use
  Company Number: PHHY2017PL169973

PATIENT
  Age: 70 Year
  Sex: Male
  Weight: 115 kg

DRUGS (2)
  1. AFINITOR [Suspect]
     Active Substance: EVEROLIMUS
     Indication: RENAL CELL CARCINOMA
     Dosage: 10 MG, UNK
     Route: 048
     Dates: start: 20171011, end: 20171107
  2. AFINITOR [Suspect]
     Active Substance: EVEROLIMUS
     Dosage: 5 MG, UNK
     Route: 048
     Dates: start: 20171107, end: 20171212

REACTIONS (14)
  - Dyspnoea [Recovered/Resolved]
  - Rash [Not Recovered/Not Resolved]
  - Cough [Recovered/Resolved]
  - Exercise tolerance decreased [Not Recovered/Not Resolved]
  - Asthenia [Recovering/Resolving]
  - Pneumonia [Recovered/Resolved]
  - Haemoglobin decreased [Unknown]
  - Blood creatinine decreased [Unknown]
  - Blood urea increased [Not Recovered/Not Resolved]
  - Blood creatinine increased [Not Recovered/Not Resolved]
  - Anaemia [Not Recovered/Not Resolved]
  - C-reactive protein increased [Recovered/Resolved]
  - Renal failure [Not Recovered/Not Resolved]
  - Hyperglycaemia [Not Recovered/Not Resolved]

NARRATIVE: CASE EVENT DATE: 20171108
